FAERS Safety Report 8544432-9 (Version None)
Quarter: 2012Q3

REPORT INFORMATION
  Report Type: 
  Country: None (occurrence: None)
  Receive Date: 20120727
  Receipt Date: 20120719
  Transmission Date: 20120928
  Serious: Yes (Death, Other)
  Sender: FDA-Public Use
  Company Number: JP-MPIJNJ-2012-04283

PATIENT

DRUGS (1)
  1. VELCADE [Suspect]
     Indication: LEUKAEMIA PLASMACYTIC
     Dosage: 0.7 MG/M2, CYCLIC
     Route: 042

REACTIONS (3)
  - MALIGNANT ASCITES [None]
  - BRONCHOPULMONARY ASPERGILLOSIS [None]
  - PLEURAL EFFUSION [None]
